FAERS Safety Report 15218189 (Version 1)
Quarter: 2018Q3

REPORT INFORMATION
  Report Type: Spontaneous
  Country: US (occurrence: US)
  Receive Date: 20180730
  Receipt Date: 20180730
  Transmission Date: 20181010
  Serious: No
  Sender: FDA-Public Use
  Company Number: US-BRISTOL-MYERS SQUIBB COMPANY-BMS-2018-067132

PATIENT
  Sex: Female

DRUGS (1)
  1. ELIQUIS [Suspect]
     Active Substance: APIXABAN
     Indication: CEREBROVASCULAR ACCIDENT PROPHYLAXIS
     Dosage: UNK
     Route: 065

REACTIONS (7)
  - Fall [Unknown]
  - Skin discolouration [Unknown]
  - Gait disturbance [Unknown]
  - Contusion [Unknown]
  - Haematoma [Unknown]
  - Haemostasis [Unknown]
  - Joint injury [Unknown]
